FAERS Safety Report 24291360 (Version 1)
Quarter: 2024Q3

REPORT INFORMATION
  Report Type: Spontaneous
  Country: US (occurrence: None)
  Receive Date: 20240906
  Receipt Date: 20240906
  Transmission Date: 20241017
  Serious: No
  Sender: DOMPE FARMACEUTICI
  Company Number: US-FARMAPROD-202308-2435

PATIENT
  Age: 88 Year
  Sex: Female
  Weight: 81.19 kg

DRUGS (33)
  1. OXERVATE [Suspect]
     Active Substance: CENEGERMIN-BKBJ
     Indication: Neurotrophic keratopathy
     Route: 047
     Dates: start: 20230808
  2. OXERVATE [Suspect]
     Active Substance: CENEGERMIN-BKBJ
  3. OXERVATE [Suspect]
     Active Substance: CENEGERMIN-BKBJ
  4. OXERVATE [Suspect]
     Active Substance: CENEGERMIN-BKBJ
  5. ORENITRAM [Concomitant]
     Active Substance: TREPROSTINIL
     Indication: Pulmonary arterial hypertension
     Route: 048
     Dates: start: 20171020
  6. FEXOFENADINE HYDROCHLORIDE [Concomitant]
     Active Substance: FEXOFENADINE HYDROCHLORIDE
  7. BRIMONIDINE/DORZOLAMIDE [Concomitant]
  8. BYSTOLIC [Concomitant]
     Active Substance: NEBIVOLOL HYDROCHLORIDE
  9. ALBUTEROL\IPRATROPIUM [Concomitant]
     Active Substance: ALBUTEROL\IPRATROPIUM
  10. RHOPRESSA [Concomitant]
     Active Substance: NETARSUDIL MESYLATE
  11. ONDANSETRON HYDROCHLORIDE [Concomitant]
     Active Substance: ONDANSETRON HYDROCHLORIDE
  12. SULFACETAMIDE SODIUM [Concomitant]
     Active Substance: SULFACETAMIDE SODIUM
  13. VALACYCLOVIR [Concomitant]
     Active Substance: VALACYCLOVIR HYDROCHLORIDE
  14. POTASSIUM CHLORIDE [Concomitant]
     Active Substance: POTASSIUM CHLORIDE
  15. OMEGA-3 ACIDS [Concomitant]
     Active Substance: OMEGA-3 FATTY ACIDS
  16. FUROSEMIDE [Concomitant]
     Active Substance: FUROSEMIDE
  17. ELIQUIS [Concomitant]
     Active Substance: APIXABAN
  18. DIGOXIN [Concomitant]
     Active Substance: DIGOXIN
  19. BENZOYL PEROXIDE\CLINDAMYCIN PHOSPHATE [Concomitant]
     Active Substance: BENZOYL PEROXIDE\CLINDAMYCIN PHOSPHATE
  20. AZELASTINE HYDROCHLORIDE [Concomitant]
     Active Substance: AZELASTINE HYDROCHLORIDE
  21. ALPRAZOLAM [Concomitant]
     Active Substance: ALPRAZOLAM
  22. ALBUTEROL SULFATE [Concomitant]
     Active Substance: ALBUTEROL SULFATE
  23. TYLENOL [Concomitant]
     Active Substance: ACETAMINOPHEN
     Indication: Eye pain
  24. SYNTHROID [Concomitant]
     Active Substance: LEVOTHYROXINE SODIUM
  25. DORZOLAMIDE [Concomitant]
     Active Substance: DORZOLAMIDE
  26. SYSTANE NOS [Concomitant]
     Active Substance: UNSPECIFIED INGREDIENT
  27. OXYGEN [Concomitant]
     Active Substance: OXYGEN
  28. PREDNISONE [Concomitant]
     Active Substance: PREDNISONE
  29. LASIX [Concomitant]
     Active Substance: FUROSEMIDE
  30. ANORO ELLIPTA [Concomitant]
     Active Substance: UMECLIDINIUM BROMIDE\VILANTEROL TRIFENATATE
  31. XANAX [Concomitant]
     Active Substance: ALPRAZOLAM
  32. BRETZI [Concomitant]
  33. LOVAZA [Concomitant]
     Active Substance: OMEGA-3-ACID ETHYL ESTERS

REACTIONS (10)
  - Eye pain [Not Recovered/Not Resolved]
  - Foreign body sensation in eyes [Not Recovered/Not Resolved]
  - Wrong technique in product usage process [Unknown]
  - Device use issue [Not Recovered/Not Resolved]
  - Photophobia [Unknown]
  - Product dose omission issue [Unknown]
  - Swelling of eyelid [Unknown]
  - Headache [Unknown]
  - Drug ineffective [Unknown]
  - Urinary tract infection [Unknown]
